FAERS Safety Report 5522814-7 (Version None)
Quarter: 2007Q4

REPORT INFORMATION
  Report Type: 
  Country: None (occurrence: None)
  Receive Date: 20071120
  Receipt Date: 20071112
  Transmission Date: 20080405
  Serious: Yes (Hospitalization)
  Sender: FDA-Public Use
  Company Number: US-MERCK-0711USA02925

PATIENT
  Age: 60 Year
  Sex: Male

DRUGS (11)
  1. PRINIVIL [Suspect]
     Route: 048
  2. ASPIRIN [Concomitant]
     Route: 048
  3. COREG [Concomitant]
     Route: 048
  4. DIGITEK [Concomitant]
     Route: 048
  5. GLYBURIDE AND METFORMIN HYDROCHLORIDE [Concomitant]
     Route: 048
  6. HYDROCODONE BITARTRATE [Concomitant]
     Route: 048
  7. THEOPHYLLINE [Concomitant]
     Route: 048
  8. FUROSEMIDE [Concomitant]
     Route: 048
  9. PROSCAR [Concomitant]
     Route: 048
  10. GEMFIBROZIL [Concomitant]
     Route: 048
  11. INSULIN GLARGINE [Concomitant]
     Route: 051

REACTIONS (12)
  - ACIDOSIS [None]
  - BLOOD POTASSIUM INCREASED [None]
  - CARDIAC FAILURE CONGESTIVE [None]
  - CHRONIC OBSTRUCTIVE PULMONARY DISEASE [None]
  - ELECTROLYTE IMBALANCE [None]
  - LOSS OF CONSCIOUSNESS [None]
  - MENTAL STATUS CHANGES [None]
  - PULMONARY OEDEMA [None]
  - RENAL FAILURE ACUTE [None]
  - RESPIRATORY FAILURE [None]
  - SUBSTANCE ABUSE [None]
  - URINARY TRACT INFECTION [None]
